FAERS Safety Report 23279920 (Version 4)
Quarter: 2024Q1

REPORT INFORMATION
  Report Type: Spontaneous
  Country: JP (occurrence: JP)
  Receive Date: 20231209
  Receipt Date: 20240203
  Transmission Date: 20240410
  Serious: Yes (Other)
  Sender: FDA-Public Use
  Company Number: JP-UCBJ-CD202312384UCBPHAPROD

PATIENT
  Age: 5 Year
  Sex: Male
  Weight: 24.3 kg

DRUGS (1)
  1. VIMPAT [Suspect]
     Active Substance: LACOSAMIDE
     Indication: Benign rolandic epilepsy
     Dosage: 48 MILLIGRAM, 2X/DAY (BID)
     Route: 048
     Dates: start: 20231026, end: 20231122

REACTIONS (3)
  - Change in seizure presentation [Recovering/Resolving]
  - Therapeutic product ineffective [Unknown]
  - Treatment noncompliance [Unknown]

NARRATIVE: CASE EVENT DATE: 20230101
